FAERS Safety Report 6756324-6 (Version None)
Quarter: 2010Q2

REPORT INFORMATION
  Report Type: 
  Country: None (occurrence: None)
  Receive Date: 20100604
  Receipt Date: 20100603
  Transmission Date: 20101027
  Serious: Yes (Other)
  Sender: FDA-Public Use
  Company Number: CH-ROCHE-704309

PATIENT
  Sex: Female
  Weight: 73 kg

DRUGS (5)
  1. HERCEPTIN [Suspect]
     Route: 042
     Dates: start: 20091019
  2. FLUOROURACIL [Concomitant]
     Indication: BREAST CANCER
  3. EPIRUBICIN [Concomitant]
     Indication: BREAST CANCER
  4. CYCLOPHOSPHAMIDE [Concomitant]
     Indication: BREAST CANCER
     Dosage: DRUG REPORTED: CYCLOPHOSPHAMID
  5. TAXOTERE [Concomitant]
     Indication: BREAST CANCER

REACTIONS (1)
  - PULMONARY EMBOLISM [None]
